FAERS Safety Report 11692275 (Version 32)
Quarter: 2020Q2

REPORT INFORMATION
  Report Type: Report from Study
  Country: CA (occurrence: CA)
  Receive Date: 20151103
  Receipt Date: 20200519
  Transmission Date: 20200713
  Serious: Yes (Life-Threatening, Hospitalization, Other)
  Sender: FDA-Public Use
  Company Number: CA-ROCHE-1653795

PATIENT
  Age: 45 Year
  Sex: Female
  Weight: 90 kg

DRUGS (10)
  1. HCTZ [Concomitant]
     Active Substance: HYDROCHLOROTHIAZIDE
  2. ACTEMRA [Suspect]
     Active Substance: TOCILIZUMAB
     Route: 042
     Dates: start: 20161101
  3. CELEBREX [Concomitant]
     Active Substance: CELECOXIB
  4. LOSEC [Concomitant]
     Active Substance: OMEPRAZOLE
  5. ACTEMRA [Suspect]
     Active Substance: TOCILIZUMAB
     Indication: RHEUMATOID ARTHRITIS
     Route: 042
     Dates: start: 20150904
  6. ACTEMRA [Suspect]
     Active Substance: TOCILIZUMAB
     Route: 042
     Dates: start: 20180412
  7. ACTEMRA [Suspect]
     Active Substance: TOCILIZUMAB
     Route: 042
     Dates: start: 20170316
  8. NUVARING [Concomitant]
     Active Substance: ETHINYL ESTRADIOL\ETONOGESTREL
  9. METHOTREXATE. [Concomitant]
     Active Substance: METHOTREXATE
  10. CIPRALEX [Concomitant]
     Active Substance: ESCITALOPRAM OXALATE

REACTIONS (20)
  - Blood pressure increased [Unknown]
  - Urinary tract infection [Unknown]
  - Weight increased [Recovering/Resolving]
  - Rheumatoid arthritis [Not Recovered/Not Resolved]
  - Cholelithiasis [Not Recovered/Not Resolved]
  - Blood pressure systolic increased [Unknown]
  - Arthralgia [Unknown]
  - Arthritis [Unknown]
  - Heart rate decreased [Unknown]
  - Non-cardiac chest pain [Not Recovered/Not Resolved]
  - Nephrolithiasis [Unknown]
  - Underdose [Unknown]
  - Stress at work [Not Recovered/Not Resolved]
  - Blood pressure diastolic abnormal [Unknown]
  - Eye inflammation [Unknown]
  - Rheumatoid arthritis [Not Recovered/Not Resolved]
  - Coronary artery occlusion [Not Recovered/Not Resolved]
  - Weight decreased [Not Recovered/Not Resolved]
  - Blood pressure systolic abnormal [Unknown]
  - Fatigue [Not Recovered/Not Resolved]

NARRATIVE: CASE EVENT DATE: 20151011
